FAERS Safety Report 12959353 (Version 1)
Quarter: 2016Q4

REPORT INFORMATION
  Report Type: Spontaneous
  Country: US (occurrence: US)
  Receive Date: 20161118
  Receipt Date: 20161118
  Transmission Date: 20170207
  Serious: No
  Sender: FDA-Public Use
  Company Number: None

PATIENT
  Age: 55 Year
  Sex: Female

DRUGS (9)
  1. OCALIVA [Suspect]
     Active Substance: OBETICHOLIC ACID
     Indication: BILIARY CIRRHOSIS PRIMARY
     Dosage: 5MG MON,WED, FRI ORAL
     Route: 048
     Dates: start: 20160922
  2. URSODIOL. [Concomitant]
     Active Substance: URSODIOL
  3. GABAPENTIN. [Concomitant]
     Active Substance: GABAPENTIN
  4. PANTOPRAZOLE [Concomitant]
     Active Substance: PANTOPRAZOLE SODIUM
  5. FERROUS SULF [Concomitant]
  6. ASPIRIN. [Concomitant]
     Active Substance: ASPIRIN
  7. CALCIUM/D [Concomitant]
  8. NADOLOL. [Concomitant]
     Active Substance: NADOLOL
  9. DOCUSATE SOD [Concomitant]

REACTIONS (1)
  - Fatigue [None]

NARRATIVE: CASE EVENT DATE: 20161101
